FAERS Safety Report 23994419 (Version 1)
Quarter: 2024Q2

REPORT INFORMATION
  Report Type: Spontaneous
  Country: US (occurrence: None)
  Receive Date: 20240618
  Receipt Date: 20240618
  Transmission Date: 20240715
  Serious: Yes (Hospitalization)
  Sender: FDA-Public Use
  Company Number: None

PATIENT
  Sex: Female

DRUGS (6)
  1. TALTZ [Suspect]
     Active Substance: IXEKIZUMAB
     Indication: Psoriatic arthropathy
     Dosage: 80MG EVERY 2 WEEKS SC
     Route: 058
     Dates: start: 202211
  2. DUPIXEDNT PEN (2-PAK) [Concomitant]
  3. NORMAL WSALINE FLUSH (10ML) [Concomitant]
  4. HEPARIN L/L FLUSH SYRINGE [Concomitant]
  5. SODIUM CHLOR INJ (1000 ML/BAG) [Concomitant]
  6. GAMMAGARD LIQ SOLN [Concomitant]

REACTIONS (2)
  - Blood potassium decreased [None]
  - Pyrexia [None]
